FAERS Safety Report 5846888-9 (Version None)
Quarter: 2008Q3

REPORT INFORMATION
  Report Type: 
  Country: None (occurrence: None)
  Receive Date: 20080815
  Receipt Date: 20080806
  Transmission Date: 20090109
  Serious: Yes (Hospitalization)
  Sender: FDA-Public Use
  Company Number: JP-ABBOTT-08P-087-0469181-00

PATIENT
  Sex: Male

DRUGS (5)
  1. SEVOFLURANE [Suspect]
     Indication: ASTHMA
     Route: 055
     Dates: start: 20080118, end: 20080120
  2. AMINOPHYLLINE HYDRATE [Concomitant]
     Indication: DRUG USE FOR UNKNOWN INDICATION
  3. HYDROCORTISONE [Concomitant]
     Indication: DRUG USE FOR UNKNOWN INDICATION
  4. PROPOFOL [Concomitant]
     Indication: DRUG USE FOR UNKNOWN INDICATION
  5. RANITIDINE [Concomitant]
     Indication: DRUG USE FOR UNKNOWN INDICATION

REACTIONS (2)
  - EYE MOVEMENT DISORDER [None]
  - HYPERTENSIVE ENCEPHALOPATHY [None]
